FAERS Safety Report 21476073 (Version 1)
Quarter: 2022Q4

REPORT INFORMATION
  Report Type: Spontaneous
  Country: US (occurrence: US)
  Receive Date: 20221019
  Receipt Date: 20221019
  Transmission Date: 20230113
  Serious: Yes (Other)
  Sender: FDA-Public Use
  Company Number: US-BRISTOL-MYERS SQUIBB COMPANY-2022-123527

PATIENT
  Age: 74 Year
  Sex: Female
  Weight: 88.8 kg

DRUGS (2)
  1. REVLIMID [Suspect]
     Active Substance: LENALIDOMIDE
     Indication: Plasma cell myeloma
     Dosage: FREQUENCY: ONE CAPSULE A DAY FOR 21 DAYS AND THEN 7 DAYS OFF
     Route: 048
     Dates: start: 202110
  2. REVLIMID [Suspect]
     Active Substance: LENALIDOMIDE
     Dosage: FREQUENCY: ONE CAPSULE A DAY FOR 21 DAYS AND THEN 7 DAYS OFF
     Route: 048

REACTIONS (1)
  - Thrombocytopenia [Unknown]
